FAERS Safety Report 5710494-7 (Version None)
Quarter: 2008Q2

REPORT INFORMATION
  Report Type: 
  Country: None (occurrence: None)
  Receive Date: 20080414
  Receipt Date: 20080402
  Transmission Date: 20081010
  Serious: Yes (Disabling, Other)
  Sender: FDA-Public Use
  Company Number: 2008SP006326

PATIENT
  Age: 47 Year
  Sex: Male

DRUGS (1)
  1. NASONEX [Suspect]
     Indication: NASAL CONGESTION
     Dosage: 2 DF; BID; NAS
     Route: 045
     Dates: start: 20071105, end: 20071119

REACTIONS (7)
  - CONDITION AGGRAVATED [None]
  - FEELING DRUNK [None]
  - IMPAIRED WORK ABILITY [None]
  - MENTAL DISORDER [None]
  - STRESS [None]
  - TINNITUS [None]
  - WEIGHT DECREASED [None]
